FAERS Safety Report 9138847 (Version 1)
Quarter: 2013Q1

REPORT INFORMATION
  Report Type: Spontaneous
  Country: US (occurrence: US)
  Receive Date: 20130305
  Receipt Date: 20130305
  Transmission Date: 20140127
  Serious: No
  Sender: FDA-Public Use
  Company Number: US-PFIZER INC-2013073733

PATIENT
  Age: 75 Year
  Sex: Male
  Weight: 88.9 kg

DRUGS (3)
  1. XALKORI [Suspect]
     Indication: LUNG CARCINOMA CELL TYPE UNSPECIFIED STAGE IV
     Dosage: 250 MG, 2X/DAY
     Dates: start: 20130125, end: 20130225
  2. IRON [Concomitant]
     Indication: ANAEMIA
     Dosage: UNK
  3. INSULIN [Concomitant]
     Indication: DIABETES MELLITUS
     Dosage: UNK

REACTIONS (3)
  - Disease progression [Unknown]
  - Lung carcinoma cell type unspecified stage IV [Unknown]
  - Weight decreased [Unknown]
